FAERS Safety Report 10082070 (Version 1)
Quarter: 2014Q2

REPORT INFORMATION
  Report Type: Spontaneous
  Country: GB (occurrence: GB)
  Receive Date: 20140416
  Receipt Date: 20140416
  Transmission Date: 20141212
  Serious: Yes (Other)
  Sender: FDA-Public Use
  Company Number: GB-BRISTOL-MYERS SQUIBB COMPANY-20630935

PATIENT
  Age: 84 Year
  Sex: Female

DRUGS (2)
  1. METFORMIN HCL [Suspect]
     Indication: DIABETES MELLITUS
  2. LEVOTHYROXINE [Interacting]
     Indication: HYPOTHYROIDISM
     Dosage: ACTAVIS SR:50MCG PER DAY FROM MANY YEARS
     Route: 048

REACTIONS (2)
  - Cardiac disorder [Unknown]
  - Drug interaction [Unknown]
